FAERS Safety Report 7013014-2 (Version None)
Quarter: 2010Q3

REPORT INFORMATION
  Report Type: 
  Country: None (occurrence: None)
  Receive Date: 20100915
  Receipt Date: 20100602
  Transmission Date: 20110219
  Serious: Yes (Other)
  Sender: FDA-Public Use
  Company Number: US-WYE-H15649710

PATIENT
  Age: 58 Year
  Sex: Female
  Weight: 7.95 kg

DRUGS (5)
  1. ADVIL [Suspect]
     Indication: HEADACHE
     Dosage: 2 CAPSULE X 1, ORAL
     Route: 048
     Dates: start: 20100525, end: 20100525
  2. NEXIUM [Concomitant]
  3. AMLODIPINE [Concomitant]
  4. LISINOPRIL/HYDROCHLOROTHIAZIDE (LISINOPRIL/HYDROCHLOROTHIAZIDE) [Concomitant]
  5. LEVOTHYROXINE SODIUM [Concomitant]

REACTIONS (2)
  - OROPHARYNGEAL PAIN [None]
  - PHARYNGEAL OEDEMA [None]
